FAERS Safety Report 19900189 (Version 2)
Quarter: 2021Q4

REPORT INFORMATION
  Report Type: Spontaneous
  Country: US (occurrence: None)
  Receive Date: 20210929
  Receipt Date: 20211114
  Transmission Date: 20220303
  Serious: No
  Sender: FDA-Public Use
  Company Number: 2021A717576

PATIENT
  Age: 68 Year
  Sex: Female
  Weight: 89.4 kg

DRUGS (1)
  1. BYDUREON BCISE [Suspect]
     Active Substance: EXENATIDE
     Indication: Diabetes mellitus
     Route: 065
     Dates: start: 2021

REACTIONS (5)
  - Weight increased [Unknown]
  - Hunger [Unknown]
  - Hypoaesthesia [Unknown]
  - Device leakage [Unknown]
  - Wrong technique in device usage process [Unknown]
